FAERS Safety Report 8919518 (Version 2)
Quarter: 2013Q1

REPORT INFORMATION
  Report Type: Spontaneous
  Country: US (occurrence: US)
  Receive Date: 20121121
  Receipt Date: 20130207
  Transmission Date: 20140127
  Serious: Yes (Other)
  Sender: FDA-Public Use
  Company Number: US-BAYER-2012-120669

PATIENT
  Age: 29 Year
  Sex: Female

DRUGS (8)
  1. YAZ [Suspect]
     Indication: MOOD SWINGS
     Dosage: UNK
     Dates: start: 200804, end: 20100303
  2. HYDROCORTISON [HYDROCORTISONE] [Concomitant]
     Dosage: 25 MG, UNK
     Route: 054
  3. NYSTATIN [Concomitant]
     Route: 061
  4. MOTRIN [Concomitant]
     Dosage: 800 MG, QID
     Dates: start: 20100221
  5. TYLENOL NO. 3 [Concomitant]
     Indication: PAIN
     Dosage: 1 OR 2 EVERY 6 HOURS AS NEEDED
     Dates: start: 20100221
  6. MULTIVITAMIN [Concomitant]
  7. FISH OIL [Concomitant]
  8. LAMICTAL [Concomitant]
     Indication: MOOD SWINGS

REACTIONS (7)
  - Deep vein thrombosis [None]
  - Injury [None]
  - Pain [None]
  - Emotional distress [None]
  - General physical health deterioration [None]
  - Anxiety [None]
  - Pain [None]
